FAERS Safety Report 9632312 (Version 2)
Quarter: 2013Q4

REPORT INFORMATION
  Report Type: Spontaneous
  Country: CL (occurrence: None)
  Receive Date: 20131016
  Receipt Date: 20131101
  Transmission Date: 20140711
  Serious: Yes (Other)
  Sender: FDA-Public Use
  Company Number: SYM-2013-11468

PATIENT
  Age: 38 Year
  Sex: Male

DRUGS (3)
  1. WELLBUTRIN XL [Suspect]
     Indication: ATTENTION DEFICIT/HYPERACTIVITY DISORDER
     Dates: start: 201309, end: 20130930
  2. WELLBUTRIN XL [Suspect]
     Indication: DEPRESSION
     Dates: start: 201309, end: 20130930
  3. WELLBUTRIN XL [Suspect]
     Dates: start: 201309, end: 20130930

REACTIONS (3)
  - Convulsion [None]
  - Tongue biting [None]
  - Joint dislocation [None]
